FAERS Safety Report 8122014-0 (Version None)
Quarter: 2012Q1

REPORT INFORMATION
  Report Type: 
  Country: None (occurrence: None)
  Receive Date: 20120208
  Receipt Date: 20120202
  Transmission Date: 20120608
  Serious: Yes (Hospitalization)
  Sender: FDA-Public Use
  Company Number: US-ALLERGAN-1104858US

PATIENT
  Age: 47 Year
  Sex: Female
  Weight: 90.703 kg

DRUGS (10)
  1. COGENTIN [Concomitant]
  2. XANAX [Concomitant]
  3. SIMVASTATIN [Concomitant]
  4. ZOLOFT [Concomitant]
  5. BOTULINUM TOXIN TYPE A [Suspect]
     Indication: BLEPHAROSPASM
     Dosage: 60 UNITS, SINGLE
     Route: 030
     Dates: start: 20110329, end: 20110329
  6. NEXIUM [Concomitant]
  7. SEROQUEL [Concomitant]
  8. GEODON [Concomitant]
  9. BOTULINUM TOXIN TYPE A [Suspect]
     Indication: DYSKINESIA
     Dosage: UNK
     Dates: start: 20101201, end: 20101201
  10. LYRICA [Concomitant]

REACTIONS (3)
  - ASTHMA [None]
  - SLEEP APNOEA SYNDROME [None]
  - DYSPNOEA [None]
